FAERS Safety Report 19036570 (Version 1)
Quarter: 2021Q1

REPORT INFORMATION
  Report Type: Spontaneous
  Country: FR (occurrence: FR)
  Receive Date: 20210322
  Receipt Date: 20210322
  Transmission Date: 20210420
  Serious: Yes (Hospitalization)
  Sender: FDA-Public Use
  Company Number: FR-SA-2021SA093757

PATIENT
  Age: 38 Year
  Sex: Female
  Weight: 132 kg

DRUGS (11)
  1. HYDROXYZINE ARROW [Concomitant]
     Active Substance: HYDROXYZINE HYDROCHLORIDE
  2. LUTENYL [Concomitant]
     Active Substance: NOMEGESTROL ACETATE
  3. RITUXIMAB. [Concomitant]
     Active Substance: RITUXIMAB
  4. CABLIVI [Suspect]
     Active Substance: CAPLACIZUMAB-YHDP
     Indication: THROMBOTIC THROMBOCYTOPENIC PURPURA
     Dosage: 10 MG, TOTAL
     Route: 042
     Dates: start: 20210225
  5. LEVOTHYROX [Concomitant]
     Active Substance: LEVOTHYROXINE
  6. LORMETAZEPAM ARROW [Concomitant]
     Active Substance: LORMETAZEPAM
  7. LAROSCORBINE [Concomitant]
     Active Substance: ASCORBIC ACID
  8. SERESTA [Concomitant]
     Active Substance: OXAZEPAM
  9. TENOFOVIR DISOPROXIL [Concomitant]
     Active Substance: TENOFOVIR DISOPROXIL
     Dosage: 245 MG
  10. PRAZEPAM ARROW [Concomitant]
     Active Substance: PRAZEPAM
  11. FUROSEMIDE ARROW [Concomitant]
     Active Substance: FUROSEMIDE

REACTIONS (3)
  - Hypotension [Recovered/Resolved]
  - Headache [Recovering/Resolving]
  - Pyrexia [Recovered/Resolved]

NARRATIVE: CASE EVENT DATE: 20210225
